FAERS Safety Report 5600551-8 (Version None)
Quarter: 2008Q1

REPORT INFORMATION
  Report Type: 
  Country: None (occurrence: None)
  Receive Date: 20080123
  Receipt Date: 20071228
  Transmission Date: 20080703
  Serious: No
  Sender: FDA-Public Use
  Company Number: US-BOEHRINGER INGELHEIM PHARMACEUTICALS, INC.-2008-BP-00012BP

PATIENT
  Age: 72 Year
  Sex: Female

DRUGS (3)
  1. CATAPRES-TTS-1 [Suspect]
     Indication: HYPERTENSION
     Route: 062
     Dates: start: 20071207
  2. DIOVAN [Concomitant]
     Indication: HYPERTENSION
  3. INDERAL [Concomitant]
     Indication: HYPERTENSION

REACTIONS (6)
  - COLD SWEAT [None]
  - CONSTIPATION [None]
  - HYPOAESTHESIA FACIAL [None]
  - MUSCLE SPASMS [None]
  - OESOPHAGEAL SPASM [None]
  - PARAESTHESIA [None]
